FAERS Safety Report 8558401-6 (Version None)
Quarter: 2012Q3

REPORT INFORMATION
  Report Type: 
  Country: None (occurrence: None)
  Receive Date: 20120727
  Receipt Date: 20120727
  Transmission Date: 20120928
  Serious: Yes (Hospitalization)
  Sender: FDA-Public Use
  Company Number: None

PATIENT
  Sex: Male

DRUGS (1)
  1. ARANESP [Suspect]
     Indication: ANAEMIA
     Dosage: 200 MCG EVERY 2 WEEKS SQ
     Route: 058
     Dates: start: 20100809

REACTIONS (3)
  - HEAD INJURY [None]
  - INTRACRANIAL ANEURYSM [None]
  - CARDIAC ARREST [None]
